FAERS Safety Report 10149947 (Version 2)
Quarter: 2014Q2

REPORT INFORMATION
  Report Type: Report from Study
  Country: US (occurrence: US)
  Receive Date: 20140502
  Receipt Date: 20140606
  Transmission Date: 20141212
  Serious: Yes (Hospitalization, Other)
  Sender: FDA-Public Use
  Company Number: US-ABBVIE-14P-163-1228827-00

PATIENT
  Sex: Male
  Weight: 61.74 kg

DRUGS (30)
  1. HUMIRA [Suspect]
     Indication: CROHN^S DISEASE
     Dates: start: 2010, end: 2010
  2. HUMIRA [Suspect]
     Dates: start: 2011, end: 2011
  3. HUMIRA [Suspect]
     Dates: start: 2011, end: 2013
  4. OMEPRAZOLE [Concomitant]
     Indication: PRODUCT USED FOR UNKNOWN INDICATION
     Route: 048
  5. VITAMIN B COMPLEX [Concomitant]
     Indication: PRODUCT USED FOR UNKNOWN INDICATION
  6. FLUTICASONE [Concomitant]
     Indication: PRODUCT USED FOR UNKNOWN INDICATION
     Dosage: 50MCG/ACT NA SUSP, 2 SPRAYS DAILY, EACH NOSTRIL
     Route: 045
  7. WARFARIN [Concomitant]
     Indication: PRODUCT USED FOR UNKNOWN INDICATION
     Dosage: 1.5 TABS ON SUN, TUES, THURS, 2 TABS ALL OTHER DAYS AS DIRECTED
     Route: 048
  8. SODIUM CHLORIDE [Concomitant]
     Indication: PRODUCT USED FOR UNKNOWN INDICATION
     Dosage: 0.65% NA SOLN, 1 SPRAY, AS NEEDED
     Route: 045
  9. CODEINE [Concomitant]
     Indication: DIARRHOEA
     Dosage: 1 TO 2 TABLETS, AS NEEDED
     Route: 048
  10. CHLORHEXIDINE [Concomitant]
     Indication: PRODUCT USED FOR UNKNOWN INDICATION
     Dosage: MT SOLN, NON ALCOHOL ONLY, RINSE WITH 15ML DAILY, HOLD FOR 1 MIN, EXPECTORATE
  11. BIOTIN [Concomitant]
     Indication: PRODUCT USED FOR UNKNOWN INDICATION
     Dosage: 5000
     Route: 048
  12. BIOTIN [Concomitant]
     Indication: PRODUCT USED FOR UNKNOWN INDICATION
  13. DYCLYCLYMINE [Concomitant]
     Indication: PRODUCT USED FOR UNKNOWN INDICATION
  14. LOMOTIL [Concomitant]
     Indication: PRODUCT USED FOR UNKNOWN INDICATION
  15. VITAMIN D3 [Concomitant]
     Indication: PRODUCT USED FOR UNKNOWN INDICATION
     Route: 048
  16. CALCIUM + VITAMIN D [Concomitant]
     Indication: PRODUCT USED FOR UNKNOWN INDICATION
  17. FISH OIL [Concomitant]
     Indication: PRODUCT USED FOR UNKNOWN INDICATION
  18. RIFAXIMIN [Concomitant]
     Indication: PRODUCT USED FOR UNKNOWN INDICATION
     Route: 048
  19. SOLODYN [Concomitant]
     Indication: PRODUCT USED FOR UNKNOWN INDICATION
     Route: 048
  20. PREDNISONE [Concomitant]
     Indication: PRODUCT USED FOR UNKNOWN INDICATION
     Dosage: TAKE AS DIRECTED
     Route: 048
  21. SODIUM FLUORIDE [Concomitant]
     Indication: PRODUCT USED FOR UNKNOWN INDICATION
     Dosage: DT PSTE, BRUSH ON DAILY FOR 2 MINUTES, EXPECTORATE EXCESS BUT DON^T RINSE
  22. BENTYL [Concomitant]
     Indication: PRODUCT USED FOR UNKNOWN INDICATION
     Route: 048
  23. LOMOTIL [Concomitant]
     Indication: DIARRHOEA
     Dosage: 2.5--0.025MG, 1 TO 2 THREE TO FOUR TIMES PER DAY, AS NEEDED
     Route: 048
  24. OXYCODONE [Concomitant]
     Indication: PRODUCT USED FOR UNKNOWN INDICATION
     Dosage: 5MG/5ML SOLUTION, 5ML EVERY 4 HOURS, AS NEEDEDD
     Route: 048
  25. METROCREAM [Concomitant]
     Indication: PRODUCT USED FOR UNKNOWN INDICATION
     Dosage: 0.75% EX CREA, DAILY, AS NEEDED
     Route: 061
  26. ALLEGRA [Concomitant]
     Indication: PRODUCT USED FOR UNKNOWN INDICATION
     Route: 048
  27. OXYCODONE / ACETAMINOPHEN [Concomitant]
     Indication: PRODUCT USED FOR UNKNOWN INDICATION
     Dosage: 5-325MG/5ML SOLN, 5-10ML EVERY 4 HOURS, AS NEEDED
     Route: 048
  28. CYANOCOBALAMIN [Concomitant]
     Indication: PRODUCT USED FOR UNKNOWN INDICATION
     Route: 060
  29. CALCIUM CITRATE + D [Concomitant]
     Indication: PRODUCT USED FOR UNKNOWN INDICATION
     Dosage: 250-200MG UNIT, 2 TABS DAILY
     Route: 048
  30. OMEGA-3 FATTY ACIDS [Concomitant]
     Indication: PRODUCT USED FOR UNKNOWN INDICATION
     Dosage: WITH LUNCH
     Route: 048

REACTIONS (26)
  - Oropharyngeal pain [Unknown]
  - Tonsillar hypertrophy [Unknown]
  - Abdominal adhesions [Recovered/Resolved]
  - Fistula [Unknown]
  - Tonsil cancer [Unknown]
  - Hepatic infection [Recovered/Resolved]
  - Drug ineffective [Recovered/Resolved]
  - Gastrooesophageal reflux disease [Unknown]
  - Metabolic disorder [Unknown]
  - Hypertriglyceridaemia [Unknown]
  - Vitamin D deficiency [Unknown]
  - Quality of life decreased [Unknown]
  - Stomatitis radiation [Unknown]
  - Malnutrition [Unknown]
  - Malaise [Unknown]
  - Abdominal pain lower [Unknown]
  - Crohn^s disease [Unknown]
  - Deep vein thrombosis [Unknown]
  - Basal cell carcinoma [Unknown]
  - Rosacea [Unknown]
  - Diarrhoea [Unknown]
  - Diarrhoea [Unknown]
  - Diarrhoea [Unknown]
  - Diarrhoea [Unknown]
  - Diarrhoea [Unknown]
  - Diarrhoea [Unknown]
